FAERS Safety Report 10204450 (Version 1)
Quarter: 2014Q2

REPORT INFORMATION
  Report Type: Spontaneous
  Country: US (occurrence: US)
  Receive Date: 20140529
  Receipt Date: 20140529
  Transmission Date: 20141212
  Serious: No
  Sender: FDA-Public Use
  Company Number: US-SANOFI-AVENTIS-2013SA062793

PATIENT
  Age: 58 Year
  Sex: Female

DRUGS (3)
  1. LANTUS [Suspect]
     Route: 051
  2. HUMALOG [Suspect]
  3. LEVEMIR [Suspect]

REACTIONS (3)
  - Palpitations [Unknown]
  - Injection site rash [Unknown]
  - Injection site pruritus [Unknown]
